FAERS Safety Report 9820340 (Version 1)
Quarter: 2014Q1

REPORT INFORMATION
  Report Type: Spontaneous
  Country: US (occurrence: None)
  Receive Date: 20140114
  Receipt Date: 20140114
  Transmission Date: 20141002
  Serious: No
  Sender: FDA-Public Use
  Company Number: None

PATIENT
  Age: 65 Year
  Sex: Female
  Weight: 61.24 kg

DRUGS (1)
  1. AZITHROMYCIN [Suspect]
     Indication: INFLUENZA
     Route: 048
     Dates: start: 20140112

REACTIONS (3)
  - Blister [None]
  - Diarrhoea [None]
  - Pruritus [None]
